FAERS Safety Report 20114213 (Version 1)
Quarter: 2021Q4

REPORT INFORMATION
  Report Type: Report from Study
  Country: BR (occurrence: BR)
  Receive Date: 20211125
  Receipt Date: 20211125
  Transmission Date: 20220303
  Serious: Yes (Other)
  Sender: FDA-Public Use
  Company Number: BR-NOVARTISPH-PHHY2019BR173236

PATIENT
  Sex: Female
  Weight: 66 kg

DRUGS (3)
  1. BUDESONIDE\FORMOTEROL FUMARATE [Suspect]
     Active Substance: BUDESONIDE\FORMOTEROL FUMARATE
     Indication: Asthma
     Dosage: 2 DF (FORMOTEROL FUMARATE 12 UG, BUDESONIDE 400 UG), Q8H
     Route: 055
  2. METFORMIN [Concomitant]
     Active Substance: METFORMIN HYDROCHLORIDE
     Indication: Diabetes mellitus
     Dosage: 2 DF
     Route: 048
  3. INSULIN NOS [Concomitant]
     Active Substance: INSULIN NOS
     Indication: Diabetes mellitus
     Dosage: UNK, QD (01 INJECTION OF 25UI BY MORNING AND 1 INJECTION OF 12 UI BY NIGHT)
     Route: 065

REACTIONS (8)
  - Deafness [Recovering/Resolving]
  - Cataract [Recovering/Resolving]
  - Spinal cord injury [Recovering/Resolving]
  - Influenza [Unknown]
  - Device breakage [Not Recovered/Not Resolved]
  - Vision blurred [Unknown]
  - Product availability issue [Unknown]
  - Incorrect dose administered [Unknown]

NARRATIVE: CASE EVENT DATE: 20030101
